FAERS Safety Report 15920534 (Version 1)
Quarter: 2019Q1

REPORT INFORMATION
  Report Type: Spontaneous
  Country: BE (occurrence: BE)
  Receive Date: 20190205
  Receipt Date: 20190205
  Transmission Date: 20190417
  Serious: Yes (Other)
  Sender: FDA-Public Use
  Company Number: BE-BAYER-2019-020456

PATIENT

DRUGS (1)
  1. NEXAVAR [Suspect]
     Active Substance: SORAFENIB
     Indication: MEDULLARY THYROID CANCER
     Dosage: UNK

REACTIONS (4)
  - Metastases to lung [None]
  - Product use in unapproved indication [None]
  - Off label use [None]
  - Metastases to liver [None]

NARRATIVE: CASE EVENT DATE: 201901
